FAERS Safety Report 6835640-3 (Version None)
Quarter: 2010Q3

REPORT INFORMATION
  Report Type: 
  Country: None (occurrence: None)
  Receive Date: 20100712
  Receipt Date: 20100712
  Transmission Date: 20110219
  Serious: Yes (Other)
  Sender: FDA-Public Use
  Company Number: None

PATIENT
  Age: 47 Year
  Sex: Female
  Weight: 81.6475 kg

DRUGS (1)
  1. DEXAMETHASONE [Suspect]
     Indication: OSTEITIS
     Dosage: 1 TAB 1 TAB PO ONE TIME USE ONLY
     Route: 048
     Dates: start: 20100706, end: 20100706

REACTIONS (5)
  - ABNORMAL BEHAVIOUR [None]
  - AMNESIA [None]
  - ANXIETY [None]
  - LOSS OF CONSCIOUSNESS [None]
  - PANIC REACTION [None]
